FAERS Safety Report 15911269 (Version 1)
Quarter: 2019Q1

REPORT INFORMATION
  Report Type: Spontaneous
  Country: US (occurrence: US)
  Receive Date: 20190204
  Receipt Date: 20190204
  Transmission Date: 20190417
  Serious: No
  Sender: FDA-Public Use
  Company Number: US-ABBVIE-18K-163-2357768-00

PATIENT
  Age: 70 Year
  Sex: Female

DRUGS (3)
  1. HUMIRA [Suspect]
     Active Substance: ADALIMUMAB
     Indication: PSORIASIS
     Dosage: LOADING DOSE
     Route: 058
     Dates: start: 20180507, end: 20180507
  2. HUMIRA [Suspect]
     Active Substance: ADALIMUMAB
     Dosage: PARTIAL DOSE, LESS THAN 40 MG
     Route: 058
     Dates: start: 20180514, end: 20180514
  3. HUMIRA [Suspect]
     Active Substance: ADALIMUMAB
     Route: 058
     Dates: start: 20180514

REACTIONS (4)
  - Injection site pain [Not Recovered/Not Resolved]
  - Device issue [Recovered/Resolved]
  - Incorrect dose administered [Recovered/Resolved]
  - Injection site vesicles [Not Recovered/Not Resolved]

NARRATIVE: CASE EVENT DATE: 20180507
